FAERS Safety Report 7444797-5 (Version None)
Quarter: 2011Q2

REPORT INFORMATION
  Report Type: 
  Country: None (occurrence: None)
  Receive Date: 20110426
  Receipt Date: 20110426
  Transmission Date: 20111010
  Serious: Yes (Death, Life-Threatening, Hospitalization, Disabling, Congenital Anomaly, Other)
  Sender: FDA-Public Use
  Company Number: None

PATIENT
  Age: 35 Year
  Sex: Female
  Weight: 108.8633 kg

DRUGS (3)
  1. TRAMADOL HYDROCHLORIDE [Suspect]
  2. NEXIUM [Concomitant]
  3. PERCOCET [Concomitant]

REACTIONS (8)
  - DRUG WITHDRAWAL SYNDROME [None]
  - INSOMNIA [None]
  - NAUSEA [None]
  - DIARRHOEA [None]
  - PILOERECTION [None]
  - ANXIETY [None]
  - CHILLS [None]
  - AGITATION [None]
